FAERS Safety Report 5200650-9 (Version None)
Quarter: 2006Q4

REPORT INFORMATION
  Report Type: 
  Country: None (occurrence: None)
  Receive Date: 20061016
  Receipt Date: 20060706
  Transmission Date: 20070319
  Serious: No
  Sender: FDA-Public Use
  Company Number: 2006SP002625

PATIENT
  Age: 74 Year
  Sex: Male
  Weight: 69.4003 kg

DRUGS (4)
  1. LUNESTA [Suspect]
     Indication: INSOMNIA
     Dosage: 2 MG; ORAL
     Route: 048
     Dates: start: 20060601
  2. PRAMIPEXOLE DIHYDROCHLORIDE [Concomitant]
  3. DIHYDROCHLORIDE [Concomitant]
  4. PERCODAN [Concomitant]

REACTIONS (1)
  - INITIAL INSOMNIA [None]
